FAERS Safety Report 8310318-8 (Version None)
Quarter: 2012Q2

REPORT INFORMATION
  Report Type: 
  Country: None (occurrence: None)
  Receive Date: 20120425
  Receipt Date: 20120420
  Transmission Date: 20120825
  Serious: Yes (Other)
  Sender: FDA-Public Use
  Company Number: PHEH2012US008538

PATIENT
  Sex: Female

DRUGS (11)
  1. RECLAST [Suspect]
     Dosage: UNK UKN, YEARLY
     Route: 042
  2. CRESTOR [Concomitant]
     Dosage: 10 MG, QW3
  3. SINRALCOLONE [Concomitant]
  4. SYNTHROID [Concomitant]
  5. ALLEGRA [Concomitant]
  6. CYCLOBENZAPRINE [Concomitant]
  7. FLUOXETINE HYDROCHLORIDE [Concomitant]
  8. COQ10 [Concomitant]
  9. VITAMIN D [Concomitant]
     Dosage: 200 MG, UNK
  10. RECLAST [Suspect]
     Dosage: UNK UKN, YEARLY
     Route: 042
  11. TRAZODONE HCL [Concomitant]

REACTIONS (12)
  - SWOLLEN TONGUE [None]
  - PAIN IN JAW [None]
  - NAUSEA [None]
  - GAIT DISTURBANCE [None]
  - FALL [None]
  - DYSPHAGIA [None]
  - ARTHRALGIA [None]
  - HEADACHE [None]
  - TOOTH DISORDER [None]
  - LOSS OF CONTROL OF LEGS [None]
  - DYSARTHRIA [None]
  - FATIGUE [None]
